FAERS Safety Report 11742832 (Version 1)
Quarter: 2015Q4

REPORT INFORMATION
  Report Type: Other
  Country: JP (occurrence: JP)
  Receive Date: 20151116
  Receipt Date: 20151116
  Transmission Date: 20160304
  Serious: Yes (Other)
  Sender: FDA-Public Use
  Company Number: JP-GUERBET LLC-1044234

PATIENT
  Age: 30 Year
  Sex: Female

DRUGS (1)
  1. LIPIODOL [Suspect]
     Active Substance: ETHIODIZED OIL
     Indication: SCLEROTHERAPY
     Route: 013
     Dates: start: 20140908, end: 20140908

REACTIONS (3)
  - Intestinal scarring [Recovering/Resolving]
  - Ascites [Recovering/Resolving]
  - Intestinal ischaemia [Recovering/Resolving]

NARRATIVE: CASE EVENT DATE: 20140909
